FAERS Safety Report 17455689 (Version 2)
Quarter: 2020Q2

REPORT INFORMATION
  Report Type: Spontaneous
  Country: US (occurrence: US)
  Receive Date: 20200225
  Receipt Date: 20200406
  Transmission Date: 20200713
  Serious: Yes (Hospitalization, Other)
  Sender: FDA-Public Use
  Company Number: US-ACCORD-173696

PATIENT
  Age: 18 Year
  Sex: Male

DRUGS (1)
  1. CLOZAPINE. [Suspect]
     Active Substance: CLOZAPINE
     Indication: PSYCHOTIC DISORDER
     Dosage: TITRATED TO 350 MG CLOZAPINE ORALLY AT BEDTIME
     Route: 048

REACTIONS (9)
  - Sinus tachycardia [Recovered/Resolved]
  - Salivary hypersecretion [Unknown]
  - Therapeutic product effect decreased [Unknown]
  - Dyspnoea [Recovered/Resolved]
  - Drug level changed [Unknown]
  - Psychotic disorder [Recovered/Resolved]
  - Drooling [Unknown]
  - Anxiety [Recovered/Resolved]
  - Drug interaction [Unknown]
